FAERS Safety Report 7360786-3 (Version None)
Quarter: 2011Q1

REPORT INFORMATION
  Report Type: 
  Country: None (occurrence: None)
  Receive Date: 20110318
  Receipt Date: 20110314
  Transmission Date: 20110831
  Serious: Yes (Death, Hospitalization)
  Sender: FDA-Public Use
  Company Number: ES-GENZYME-CAMP-1001126

PATIENT
  Sex: Male
  Weight: 64 kg

DRUGS (1)
  1. CAMPATH [Suspect]
     Indication: CHRONIC LYMPHOCYTIC LEUKAEMIA
     Dosage: 20 MG, UNK
     Route: 042
     Dates: start: 20100919, end: 20100923

REACTIONS (2)
  - DEATH [None]
  - CYTOMEGALOVIRUS TEST POSITIVE [None]
